FAERS Safety Report 7032184-3 (Version None)
Quarter: 2010Q4

REPORT INFORMATION
  Report Type: 
  Country: None (occurrence: None)
  Receive Date: 20101007
  Receipt Date: 20100122
  Transmission Date: 20110411
  Serious: Yes (Death, Life-Threatening)
  Sender: FDA-Public Use
  Company Number: DE-BRISTOL-MYERS SQUIBB COMPANY-14953327

PATIENT
  Sex: Male

DRUGS (22)
  1. CETUXIMAB [Suspect]
     Indication: COLORECTAL CANCER
     Dates: start: 20041201
  2. OXALIPLATIN [Concomitant]
     Indication: METASTASES TO LIVER
     Dosage: FEB00-JUL00(80MG/M2) JUN01-OCT01(80MG/M2;D1,8,15,22,36) FEB02-MAY02(80MG/M2) OCT03-NOV03(5 DOSES)
     Dates: start: 20000201, end: 20031101
  3. FLUOROURACIL [Concomitant]
     Indication: METASTASES TO LIVER
     Dosage: 1500MG/M2(FEB00-JUL00) 2600MG/M2(JUN01-OCT01) FEB02-MAY02 OCT03-NOV03
     Dates: start: 20000201, end: 20031101
  4. FOLINIC ACID [Concomitant]
     Indication: METASTASES TO LIVER
     Dosage: FEB00-JUL00 JUN01-OCT01 FEB02-MAY02 OCT03-NOV03
     Dates: start: 20000201, end: 20031101
  5. XELODA [Concomitant]
     Indication: METASTASES TO LIVER
     Dosage: DEC03-JAN04(1MONTH) SEP04-OCT04(2 CYCLES)
     Dates: start: 20020601, end: 20041001
  6. BUSERELIN ACETATE [Concomitant]
     Indication: MALIGNANT NEOPLASM PROGRESSION
  7. BUSERELIN ACETATE [Concomitant]
     Indication: METASTASES TO LUNG
  8. GEFITINIB [Concomitant]
     Indication: METASTASES TO LIVER
     Dates: start: 20031201, end: 20040101
  9. IRINOTECAN HCL [Concomitant]
     Dates: start: 20040601, end: 20040801
  10. SODIUM SELENITE [Concomitant]
  11. MISTLETOE [Concomitant]
     Indication: IMMUNE ENHANCEMENT THERAPY
     Dosage: THYMUS PRODUCT
  12. SELENIUM [Concomitant]
     Dosage: REPEATED HIGH DOSE INFUSIONS
  13. ASCORBIC ACID [Concomitant]
     Indication: FATIGUE
     Dosage: REPEATED HIGH DOSE INFUSIONS
  14. VITAMIN E [Concomitant]
  15. OMEGA 3 FATTY ACID [Concomitant]
     Indication: FATIGUE
  16. L-CARNITINE [Concomitant]
     Indication: FATIGUE
     Dosage: REPEATED HIGH DOSE INFUSIONS
  17. VITAMINS MULTIPLE [Concomitant]
  18. DRONABINOL [Concomitant]
     Indication: CHRONIC FATIGUE SYNDROME
  19. DRONABINOL [Concomitant]
     Indication: DEPRESSION
  20. EPOGEN [Concomitant]
     Indication: HAEMOGLOBIN DECREASED
  21. CONCENTRATED RED BLOOD CELLS [Concomitant]
     Indication: HAEMOGLOBIN DECREASED
  22. CALCIUM CARBONATE [Concomitant]
     Indication: MYALGIA

REACTIONS (2)
  - HAEMOLYSIS [None]
  - THROMBOCYTOPENIA [None]
